FAERS Safety Report 13903313 (Version 4)
Quarter: 2018Q1

REPORT INFORMATION
  Report Type: Spontaneous
  Country: US (occurrence: US)
  Receive Date: 20170824
  Receipt Date: 20180124
  Transmission Date: 20180508
  Serious: Yes (Death)
  Sender: FDA-Public Use
  Company Number: US-PFIZER INC-2017363358

PATIENT
  Age: 64 Year
  Sex: Male

DRUGS (1)
  1. SUTENT [Suspect]
     Active Substance: SUNITINIB MALATE
     Indication: RENAL CELL CARCINOMA
     Dosage: 50 MG, CYCLIC (TAKE 1 CAPSULE DAILY FOR 4 WEEKS ON AND 2 WEEKS OFF OR AS DIRECTED BY PHYSICIAN)
     Route: 048
     Dates: start: 20170814

REACTIONS (3)
  - Burning sensation [Unknown]
  - Death [Fatal]
  - Blood pressure increased [Unknown]
